FAERS Safety Report 7953027-7 (Version None)
Quarter: 2011Q4

REPORT INFORMATION
  Report Type: 
  Country: None (occurrence: None)
  Receive Date: 20111201
  Receipt Date: 20111123
  Transmission Date: 20120403
  Serious: Yes (Hospitalization, Other)
  Sender: FDA-Public Use
  Company Number: US-ABBOTT-11P-163-0869409-00

PATIENT
  Sex: Male
  Weight: 77.66 kg

DRUGS (2)
  1. HUMIRA [Suspect]
     Dosage: SECOND DOSE OF 80 MG
     Dates: start: 20110831, end: 20110831
  2. HUMIRA [Suspect]
     Indication: CROHN'S DISEASE
     Dosage: FIRST DOSE 160 MG
     Dates: start: 20110817, end: 20110817

REACTIONS (5)
  - ACUTE FEBRILE NEUTROPHILIC DERMATOSIS [None]
  - ERYTHEMA MULTIFORME [None]
  - RASH ERYTHEMATOUS [None]
  - OROPHARYNGEAL PAIN [None]
  - PYREXIA [None]
